FAERS Safety Report 10486508 (Version 6)
Quarter: 2015Q2

REPORT INFORMATION
  Report Type: Report from Study
  Country: JP (occurrence: JP)
  Receive Date: 20141001
  Receipt Date: 20150423
  Transmission Date: 20150821
  Serious: Yes (Other)
  Sender: FDA-Public Use
  Company Number: JP-JNJFOC-20140810172

PATIENT
  Age: 67 Year
  Sex: Female
  Weight: 47 kg

DRUGS (3)
  1. SOVRIAD [Suspect]
     Active Substance: SIMEPREVIR
     Indication: CHRONIC HEPATITIS C
     Route: 048
     Dates: start: 20140305, end: 20140527
  2. PEGINTRON [Suspect]
     Active Substance: PEGINTERFERON ALFA-2B
     Indication: CHRONIC HEPATITIS C
     Route: 058
     Dates: start: 20140305, end: 20140813
  3. RIBAVIRIN. [Suspect]
     Active Substance: RIBAVIRIN
     Indication: CHRONIC HEPATITIS C
     Route: 048
     Dates: start: 20140305, end: 20140820

REACTIONS (11)
  - Pyrexia [Recovering/Resolving]
  - Nausea [Recovered/Resolved]
  - Malaise [Recovering/Resolving]
  - Pollakiuria [Recovering/Resolving]
  - Blood bilirubin increased [Recovered/Resolved]
  - Anaemia [Recovered/Resolved]
  - Insomnia [Recovered/Resolved]
  - Injection site rash [Recovered/Resolved]
  - Platelet count decreased [Recovering/Resolving]
  - Pruritus generalised [Recovered/Resolved]
  - White blood cell count decreased [Recovered/Resolved]

NARRATIVE: CASE EVENT DATE: 20140305
